FAERS Safety Report 18058331 (Version 1)
Quarter: 2020Q3

REPORT INFORMATION
  Report Type: Spontaneous
  Country: US (occurrence: US)
  Receive Date: 20200722
  Receipt Date: 20200722
  Transmission Date: 20201103
  Serious: Yes (Life-Threatening, Hospitalization)
  Sender: FDA-Public Use
  Company Number: None

PATIENT
  Age: 73 Year
  Sex: Male
  Weight: 78 kg

DRUGS (1)
  1. PEMBROLIZUMAB (PEMBROLIZUMAB 50MG/VIL INJ) [Suspect]
     Active Substance: PEMBROLIZUMAB
     Indication: TRANSITIONAL CELL CANCER OF RENAL PELVIS AND URETER METASTATIC
     Dates: start: 20191212, end: 20200713

REACTIONS (10)
  - Speech disorder [None]
  - Encephalitis autoimmune [None]
  - Failure to thrive [None]
  - Encephalitis [None]
  - Dysarthria [None]
  - Mental status changes [None]
  - Agitation [None]
  - Confusional state [None]
  - Blood albumin decreased [None]
  - Memory impairment [None]

NARRATIVE: CASE EVENT DATE: 20200701
